FAERS Safety Report 4760884-4 (Version None)
Quarter: 2005Q3

REPORT INFORMATION
  Report Type: 
  Country: None (occurrence: None)
  Receive Date: 20050901
  Receipt Date: 20050824
  Transmission Date: 20060218
  Serious: Yes (Hospitalization)
  Sender: FDA-Public Use
  Company Number: HQWYE102825AUG05

PATIENT
  Age: 67 Year
  Sex: Female
  Weight: 72.7 kg

DRUGS (4)
  1. MYLOTARG [Suspect]
     Indication: ACUTE MYELOID LEUKAEMIA
     Dosage: 14 MG 1X PER 1 DAY, INTRAVENOUS
     Route: 042
     Dates: start: 20050816, end: 20050816
  2. TYLENOL [Concomitant]
  3. ANASTROZOLE (ANASTROZOLE) [Concomitant]
  4. HYDROCHLOROTHIAZIDE [Concomitant]

REACTIONS (7)
  - DYSSTASIA [None]
  - FATIGUE [None]
  - GASTROINTESTINAL HAEMORRHAGE [None]
  - GINGIVAL BLEEDING [None]
  - HAEMORRHAGE INTRACRANIAL [None]
  - OEDEMA [None]
  - SOMNOLENCE [None]
